FAERS Safety Report 9956298 (Version 1)
Quarter: 2014Q1

REPORT INFORMATION
  Report Type: Report from Study
  Country: US (occurrence: US)
  Receive Date: 20140304
  Receipt Date: 20140304
  Transmission Date: 20141002
  Serious: No
  Sender: FDA-Public Use
  Company Number: US-ABBVIE-13P-163-1084978-00

PATIENT
  Age: 47 Year
  Sex: Male

DRUGS (8)
  1. HUMIRA [Suspect]
     Indication: PSORIASIS
     Dosage: STARTING DOSE
     Dates: start: 20130418, end: 20130418
  2. HUMIRA [Suspect]
     Dates: start: 20130425
  3. LISINOPRIL [Concomitant]
     Indication: ATRIAL FIBRILLATION
  4. ASPIRIN [Concomitant]
     Indication: PRODUCT USED FOR UNKNOWN INDICATION
  5. METOPROLOL [Concomitant]
     Indication: ATRIAL FIBRILLATION
  6. PRAVASTATIN [Concomitant]
     Indication: ATRIAL FIBRILLATION
  7. OXYCODONE [Concomitant]
     Indication: PAIN
  8. HYDROXYZINE [Concomitant]
     Indication: PRURITUS

REACTIONS (2)
  - Injection site pain [Not Recovered/Not Resolved]
  - Psoriasis [Not Recovered/Not Resolved]
